FAERS Safety Report 19995834 (Version 2)
Quarter: 2021Q4

REPORT INFORMATION
  Report Type: Spontaneous
  Country: ES (occurrence: ES)
  Receive Date: 20211026
  Receipt Date: 20211118
  Transmission Date: 20220303
  Serious: Yes (Death, Other)
  Sender: FDA-Public Use
  Company Number: ES-BAYER-2021A236104

PATIENT
  Age: 88 Year
  Sex: Male

DRUGS (2)
  1. ASPIRIN [Interacting]
     Active Substance: ASPIRIN
     Dosage: 100 MG
  2. TICAGRELOR [Interacting]
     Active Substance: TICAGRELOR
     Dosage: 90 MG

REACTIONS (4)
  - Haemorrhagic transformation stroke [Fatal]
  - Labelled drug-drug interaction medication error [Fatal]
  - Hemiparesis [None]
  - Aphasia [None]
